FAERS Safety Report 16990636 (Version 4)
Quarter: 2019Q4

REPORT INFORMATION
  Report Type: Spontaneous
  Country: US (occurrence: US)
  Receive Date: 20191104
  Receipt Date: 20191206
  Transmission Date: 20200122
  Serious: Yes (Death, Hospitalization, Other)
  Sender: FDA-Public Use
  Company Number: US-UNITED THERAPEUTICS-UNT-2019-018073

PATIENT
  Age: 40 Year
  Sex: Male
  Weight: 56.24 kg

DRUGS (4)
  1. REMODULIN [Suspect]
     Active Substance: TREPROSTINIL
     Indication: PULMONARY ARTERIAL HYPERTENSION
     Dosage: 0.132 ?G/KG, CONTINUING
     Route: 041
     Dates: start: 20130501
  2. WARFARIN [Concomitant]
     Active Substance: WARFARIN
     Indication: PRODUCT USED FOR UNKNOWN INDICATION
     Dosage: UNK
     Route: 065
  3. ADEMPAS [Concomitant]
     Active Substance: RIOCIGUAT
     Indication: PRODUCT USED FOR UNKNOWN INDICATION
     Dosage: UNK
     Route: 065
  4. LETAIRIS [Concomitant]
     Active Substance: AMBRISENTAN
     Indication: PRODUCT USED FOR UNKNOWN INDICATION
     Dosage: UNK
     Route: 065

REACTIONS (12)
  - Head injury [Unknown]
  - Flushing [Recovered/Resolved]
  - Fall [Recovered/Resolved with Sequelae]
  - Cough [Not Recovered/Not Resolved]
  - Feeling abnormal [Not Recovered/Not Resolved]
  - Face injury [Not Recovered/Not Resolved]
  - Device breakage [Unknown]
  - Pulmonary arterial hypertension [Fatal]
  - Loss of consciousness [Not Recovered/Not Resolved]
  - Pain [Recovered/Resolved]
  - Right ventricular failure [Fatal]
  - Renal injury [Fatal]

NARRATIVE: CASE EVENT DATE: 2019
